FAERS Safety Report 24453725 (Version 2)
Quarter: 2024Q4

REPORT INFORMATION
  Report Type: Report from Study
  Country: US (occurrence: US)
  Receive Date: 20241017
  Receipt Date: 20241018
  Transmission Date: 20250115
  Serious: No
  Sender: ROCHE
  Company Number: US-ROCHE-3360077

PATIENT
  Age: 66 Year
  Sex: Female

DRUGS (5)
  1. RITUXAN [Suspect]
     Active Substance: RITUXIMAB
     Indication: Granulomatosis with polyangiitis
     Dosage: INFUSE 1000MG INTRAVENOUSLY ON DAY(S) 1 AND DAY(S) 15 EVERY 4-6 MONTH(S)
     Route: 041
  2. BACLOFEN [Concomitant]
     Active Substance: BACLOFEN
  3. NAPROXEN [Concomitant]
     Active Substance: NAPROXEN
  4. PREDNISONE [Concomitant]
     Active Substance: PREDNISONE
  5. TRAMADOL [Concomitant]
     Active Substance: TRAMADOL

REACTIONS (2)
  - Off label use [Unknown]
  - No adverse event [Unknown]
